FAERS Safety Report 15809549 (Version 3)
Quarter: 2019Q1

REPORT INFORMATION
  Report Type: Report from Study
  Country: None (occurrence: US)
  Receive Date: 20190111
  Receipt Date: 20190227
  Transmission Date: 20190417
  Serious: Yes (Other)
  Sender: FDA-Public Use
  Company Number: US-ABBVIE-19K-163-2618980-00

PATIENT
  Age: 57 Year
  Sex: Female

DRUGS (4)
  1. SENNA [Concomitant]
     Active Substance: SENNA LEAF\SENNOSIDES\SENNOSIDES A AND B
     Indication: CONSTIPATION
  2. CHANTIX [Concomitant]
     Active Substance: VARENICLINE TARTRATE
     Indication: EX-TOBACCO USER
  3. HUMIRA [Suspect]
     Active Substance: ADALIMUMAB
     Indication: RHEUMATOID ARTHRITIS
     Route: 058
     Dates: start: 201801
  4. HUMIRA [Suspect]
     Active Substance: ADALIMUMAB
     Indication: CROHN^S DISEASE

REACTIONS (22)
  - Joint swelling [Recovering/Resolving]
  - Hypoaesthesia [Not Recovered/Not Resolved]
  - Inappropriate schedule of product administration [Unknown]
  - Wrong technique in product usage process [Unknown]
  - Night sweats [Not Recovered/Not Resolved]
  - Gait disturbance [Not Recovered/Not Resolved]
  - Burning sensation [Recovering/Resolving]
  - Fatigue [Not Recovered/Not Resolved]
  - Nerve compression [Recovering/Resolving]
  - Pain in extremity [Not Recovered/Not Resolved]
  - Device issue [Unknown]
  - Post procedural complication [Unknown]
  - Anxiety [Unknown]
  - Depressed mood [Unknown]
  - Muscular weakness [Not Recovered/Not Resolved]
  - Constipation [Unknown]
  - Injection site haemorrhage [Not Recovered/Not Resolved]
  - Fungal skin infection [Unknown]
  - Hot flush [Not Recovered/Not Resolved]
  - Injection site pain [Recovering/Resolving]
  - Headache [Unknown]
  - Dysstasia [Not Recovered/Not Resolved]

NARRATIVE: CASE EVENT DATE: 20180925
